FAERS Safety Report 6885321-5 (Version None)
Quarter: 2010Q3

REPORT INFORMATION
  Report Type: 
  Country: None (occurrence: None)
  Receive Date: 20100729
  Receipt Date: 20100723
  Transmission Date: 20110219
  Serious: Yes (Other)
  Sender: FDA-Public Use
  Company Number: IT-ALLERGAN-1009624US

PATIENT
  Sex: Female

DRUGS (1)
  1. BOTOX [Suspect]
     Indication: HYPERHIDROSIS
     Dosage: UNK

REACTIONS (9)
  - ASTHENIA [None]
  - BLINDNESS [None]
  - BOTULISM [None]
  - DIZZINESS [None]
  - INJECTION SITE PAIN [None]
  - MALAISE [None]
  - MONOPLEGIA [None]
  - MYDRIASIS [None]
  - STRESS [None]
